FAERS Safety Report 8165776-9 (Version None)
Quarter: 2012Q1

REPORT INFORMATION
  Report Type: 
  Country: None (occurrence: None)
  Receive Date: 20120227
  Receipt Date: 20110304
  Transmission Date: 20120608
  Serious: No
  Sender: FDA-Public Use
  Company Number: US-MYLANLABS-2011S1002182

PATIENT
  Age: 16 Year
  Sex: Male
  Weight: 47.63 kg

DRUGS (1)
  1. AMNESTEEM [Suspect]
     Indication: ACNE
     Dates: start: 20101026

REACTIONS (3)
  - DRY SKIN [None]
  - LIP DRY [None]
  - MEAN CELL VOLUME ABNORMAL [None]
